FAERS Safety Report 9670776 (Version 1)
Quarter: 2013Q4

REPORT INFORMATION
  Report Type: Report from Study
  Country: US (occurrence: US)
  Receive Date: 20131106
  Receipt Date: 20131106
  Transmission Date: 20140711
  Serious: Yes (Other)
  Sender: FDA-Public Use
  Company Number: US-JNJFOC-20131017909

PATIENT
  Sex: Female
  Weight: 77.11 kg

DRUGS (4)
  1. REMICADE [Suspect]
     Indication: PSORIASIS
     Dosage: FREQUENCY EVERY 6-8 WEEKS (STARTED INFLIXIMAB 5 YEARS AGO FROM THE DATE OF REPORT)
     Route: 042
     Dates: start: 2008
  2. LOSARTAN AND HYDROCHLOROTHIAZIDE [Concomitant]
     Indication: BLOOD PRESSURE
     Route: 048
     Dates: start: 2011
  3. CRESTOR [Concomitant]
     Indication: BLOOD CHOLESTEROL
     Route: 048
     Dates: start: 2012
  4. VITAMIN D [Concomitant]
     Indication: VITAMIN D DEFICIENCY
     Dosage: 50,000UNIT
     Route: 048
     Dates: start: 2012

REACTIONS (2)
  - Dysplasia [Not Recovered/Not Resolved]
  - Psoriasis [Unknown]
